FAERS Safety Report 7861455-3 (Version None)
Quarter: 2011Q4

REPORT INFORMATION
  Report Type: 
  Country: None (occurrence: None)
  Receive Date: 20111027
  Receipt Date: 20111019
  Transmission Date: 20120403
  Serious: Yes (Hospitalization)
  Sender: FDA-Public Use
  Company Number: US-JNJFOC-20111009205

PATIENT
  Sex: Male
  Weight: 139.71 kg

DRUGS (6)
  1. CORTICOSTEROIDS [Suspect]
     Indication: PRODUCT USED FOR UNKNOWN INDICATION
  2. PROZAC [Concomitant]
     Indication: ANXIETY
  3. SEROQUEL [Concomitant]
     Indication: ANXIETY
  4. USTEKINUMAB [Suspect]
     Indication: PSORIASIS
     Route: 058
     Dates: start: 20110501
  5. LOVASTATIN [Concomitant]
  6. LISINOPRIL [Concomitant]
     Indication: HYPERTENSION

REACTIONS (4)
  - STAPHYLOCOCCUS TEST POSITIVE [None]
  - EYE ABSCESS [None]
  - CELLULITIS [None]
  - TYPE 2 DIABETES MELLITUS [None]
